FAERS Safety Report 10053103 (Version 1)
Quarter: 2014Q1

REPORT INFORMATION
  Report Type: Spontaneous
  Country: AU (occurrence: None)
  Receive Date: 20140331
  Receipt Date: 20140331
  Transmission Date: 20141002
  Serious: Yes (Hospitalization)
  Sender: FDA-Public Use
  Company Number: 2014AP002325

PATIENT
  Age: 73 Year
  Sex: Female

DRUGS (11)
  1. ALENDRONIC ACID (ALENDRONIC ACID) [Suspect]
  2. ESOMEPRAZOLE (ESOMEPRAZOLE) [Suspect]
  3. FLECAINIDE (FLECAINIDE) [Concomitant]
  4. CANDESARTAN CILEXETIL (CANDESARTAN CILEXETIL) [Concomitant]
  5. DOSULEPIN (DOSULEPIN) [Concomitant]
  6. LERCANIBIPINE (LERCANIDIPINE) [Concomitant]
  7. FOLIC ACID (FOLIC ACID) [Concomitant]
  8. FUROSEMIDE (FUROSEMIDE) [Concomitant]
  9. WARFARIN (WARFARIN) [Concomitant]
  10. CALCIUM [Concomitant]
  11. VITAMIN D [Concomitant]

REACTIONS (4)
  - Femur fracture [None]
  - Drug interaction [None]
  - Atypical femur fracture [None]
  - Drug effect decreased [None]
